FAERS Safety Report 7552164-9 (Version None)
Quarter: 2011Q2

REPORT INFORMATION
  Report Type: 
  Country: None (occurrence: None)
  Receive Date: 20110616
  Receipt Date: 20040324
  Transmission Date: 20111010
  Serious: Yes (Other)
  Sender: FDA-Public Use
  Company Number: PHHO2004JP00776

PATIENT
  Sex: Male

DRUGS (9)
  1. DIOVAN [Suspect]
     Dosage: 80 MG, QD
     Route: 048
     Dates: start: 20030110
  2. LANSOPRAZOLE [Concomitant]
  3. PROCHLORPERAZINE [Concomitant]
  4. NORVASC [Concomitant]
  5. OXAZEPAM [Concomitant]
  6. FAMOTIDINE [Concomitant]
  7. DIOVAN [Suspect]
     Indication: HYPERTENSION
     Dosage: 40 MG, QD
     Route: 048
     Dates: start: 20021209, end: 20030110
  8. BASEN [Concomitant]
  9. TAMSULOSIN HCL [Concomitant]

REACTIONS (3)
  - DIZZINESS [None]
  - TRANSIENT ISCHAEMIC ATTACK [None]
  - HYPERTENSION [None]
